FAERS Safety Report 18487197 (Version 2)
Quarter: 2021Q3

REPORT INFORMATION
  Report Type: Spontaneous
  Country: US (occurrence: US)
  Receive Date: 20201110
  Receipt Date: 20210823
  Transmission Date: 20211014
  Serious: No
  Sender: FDA-Public Use
  Company Number: NVSC2020US295999

PATIENT
  Sex: Male

DRUGS (1)
  1. KESIMPTA [Suspect]
     Active Substance: OFATUMUMAB
     Indication: MULTIPLE SCLEROSIS
     Dosage: 1 DF (AT WEEK 0, 1 AND 2 AS DIRECTED)
     Route: 058

REACTIONS (3)
  - Chills [Unknown]
  - Pyrexia [Unknown]
  - Influenza like illness [Unknown]
